FAERS Safety Report 10070689 (Version 7)
Quarter: 2019Q4

REPORT INFORMATION
  Report Type: Report from Study
  Country: US (occurrence: US)
  Receive Date: 20140410
  Receipt Date: 20191231
  Transmission Date: 20200122
  Serious: Yes (Hospitalization, Other)
  Sender: FDA-Public Use
  Company Number: US-SA-2014SA009748

PATIENT
  Age: 67 Year
  Sex: Female

DRUGS (2)
  1. TERIFLUNOMIDE. [Suspect]
     Active Substance: TERIFLUNOMIDE
     Indication: MULTIPLE SCLEROSIS
     Dosage: 14 MG,QD
     Route: 048
     Dates: start: 20130114
  2. TERIFLUNOMIDE. [Suspect]
     Active Substance: TERIFLUNOMIDE
     Dosage: 14 MG,QD
     Route: 048
     Dates: start: 20180222

REACTIONS (27)
  - Multiple sclerosis relapse [Unknown]
  - Toothache [Unknown]
  - Pruritus [Unknown]
  - Alopecia [Not Recovered/Not Resolved]
  - Trigger finger [Not Recovered/Not Resolved]
  - Fatigue [Not Recovered/Not Resolved]
  - Condition aggravated [Unknown]
  - Paraesthesia [Unknown]
  - Condition aggravated [Not Recovered/Not Resolved]
  - Shoulder arthroplasty [Unknown]
  - Pruritus [Unknown]
  - Abdominal discomfort [Unknown]
  - Myalgia [Unknown]
  - Tremor [Unknown]
  - Temporomandibular joint syndrome [Unknown]
  - Laryngitis [Unknown]
  - Blindness unilateral [Unknown]
  - Balance disorder [Unknown]
  - Visual impairment [Unknown]
  - Cartilage atrophy [Unknown]
  - Product dose omission [Unknown]
  - Insomnia [Recovering/Resolving]
  - Arthralgia [Unknown]
  - Nausea [Recovering/Resolving]
  - Diarrhoea [Recovering/Resolving]
  - Depression [Not Recovered/Not Resolved]
  - Dizziness [Unknown]

NARRATIVE: CASE EVENT DATE: 2014
